FAERS Safety Report 15013353 (Version 1)
Quarter: 2018Q2

REPORT INFORMATION
  Report Type: Spontaneous
  Country: US (occurrence: US)
  Receive Date: 20180614
  Receipt Date: 20180614
  Transmission Date: 20180711
  Serious: No
  Sender: FDA-Public Use
  Company Number: US-MIST-STN-2017-0468

PATIENT
  Sex: Male

DRUGS (1)
  1. STENDRA [Suspect]
     Active Substance: AVANAFIL
     Indication: ERECTILE DYSFUNCTION
     Dosage: 100MG AS NEEDED
     Route: 048

REACTIONS (2)
  - Orgasm abnormal [Unknown]
  - Semen volume increased [Unknown]
